FAERS Safety Report 7812920-6 (Version None)
Quarter: 2011Q4

REPORT INFORMATION
  Report Type: 
  Country: None (occurrence: None)
  Receive Date: 20111013
  Receipt Date: 20111004
  Transmission Date: 20120403
  Serious: Yes (Other)
  Sender: FDA-Public Use
  Company Number: US-US-EMD SERONO, INC.-7087566

PATIENT
  Sex: Female
  Weight: 43 kg

DRUGS (2)
  1. REBIF [Suspect]
     Indication: MULTIPLE SCLEROSIS
     Route: 058
     Dates: start: 20090430, end: 20110101
  2. REBIF [Suspect]
     Route: 058
     Dates: start: 20110201, end: 20110201

REACTIONS (4)
  - INJECTION SITE REACTION [None]
  - INJECTION SITE PAIN [None]
  - OCULOPHARYNGEAL DYSTROPHY [None]
  - INFLUENZA [None]
